FAERS Safety Report 17631235 (Version 1)
Quarter: 2020Q2

REPORT INFORMATION
  Report Type: Other
  Country: CA (occurrence: CA)
  Receive Date: 20200406
  Receipt Date: 20200406
  Transmission Date: 20200713
  Serious: Yes (Other)
  Sender: FDA-Public Use
  Company Number: CA-COVIS PHARMA B.V.-2020COV00140

PATIENT
  Age: 43 Year
  Sex: Female

DRUGS (23)
  1. CIPROFLOXACIN HYDROCHLORIDE. [Suspect]
     Active Substance: CIPROFLOXACIN HYDROCHLORIDE
  2. ATROVENT [Suspect]
     Active Substance: IPRATROPIUM BROMIDE
  3. AZITHROMYCIN ANHYDROUS. [Suspect]
     Active Substance: AZITHROMYCIN ANHYDROUS
  4. SINGULAIR [Suspect]
     Active Substance: MONTELUKAST SODIUM
  5. SYMBICORT [Suspect]
     Active Substance: BUDESONIDE\FORMOTEROL FUMARATE DIHYDRATE
  6. ZENHALE [Suspect]
     Active Substance: FORMOTEROL FUMARATE\MOMETASONE FUROATE
  7. ULTIBRO BREEZHALER [Suspect]
     Active Substance: GLYCOPYRRONIUM\INDACATEROL
  8. OMNARIS [Suspect]
     Active Substance: CICLESONIDE
     Dosage: UNK
  9. COMBIVENT [Suspect]
     Active Substance: ALBUTEROL SULFATE\IPRATROPIUM BROMIDE
     Dosage: UNK
  10. MOXIFLOXACIN HYDROCHLORIDE. [Suspect]
     Active Substance: MOXIFLOXACIN HYDROCHLORIDE
  11. UMECLIDINIUM BROMIDE; VILANTEROL TRIFENATATE [Suspect]
     Active Substance: UMECLIDINIUM BROMIDE\VILANTEROL TRIFENATATE
  12. INSPIOLTO RESPIMAT [Suspect]
     Active Substance: OLODATEROL HYDROCHLORIDE\TIOTROPIUM BROMIDE MONOHYDRATE
  13. MEPOLIZUMAB [Suspect]
     Active Substance: MEPOLIZUMAB
     Indication: ASTHMA
     Dosage: 100 MG, 1X/DAY
     Route: 042
  14. NASONEX [Suspect]
     Active Substance: MOMETASONE FUROATE
  15. VENTOLIN [Suspect]
     Active Substance: ALBUTEROL SULFATE
     Dosage: 400 ?G, 1X/DAY
  16. XOLAIR [Suspect]
     Active Substance: OMALIZUMAB
  17. SPIRIVA RESPIMAT [Suspect]
     Active Substance: TIOTROPIUM BROMIDE
     Dosage: 18 ?G, 1X/DAY
  18. ADVAIR HFA [Suspect]
     Active Substance: FLUTICASONE PROPIONATE\SALMETEROL XINAFOATE
  19. AVAMYS [Suspect]
     Active Substance: FLUTICASONE FUROATE
  20. BREO ELLIPTA [Suspect]
     Active Substance: FLUTICASONE FUROATE\VILANTEROL TRIFENATATE
  21. UMECLIDINIUM BROMIDE [Suspect]
     Active Substance: UMECLIDINIUM BROMIDE
  22. PREDNISONE. [Suspect]
     Active Substance: PREDNISONE
  23. SEEBRI [Suspect]
     Active Substance: GLYCOPYRROLATE

REACTIONS (12)
  - Cardiac murmur [Unknown]
  - Chronic obstructive pulmonary disease [Unknown]
  - Sarcoidosis [Unknown]
  - Lung neoplasm malignant [Unknown]
  - Total lung capacity increased [Unknown]
  - Asthma-chronic obstructive pulmonary disease overlap syndrome [Unknown]
  - Gastrooesophageal reflux disease [Unknown]
  - Oedema peripheral [Unknown]
  - Wheezing [Unknown]
  - Bronchiectasis [Unknown]
  - Nasal polyps [Unknown]
  - Rhinitis allergic [Unknown]
